FAERS Safety Report 11107771 (Version 5)
Quarter: 2019Q1

REPORT INFORMATION
  Report Type: Spontaneous
  Country: US (occurrence: US)
  Receive Date: 20150512
  Receipt Date: 20190206
  Transmission Date: 20190417
  Serious: Yes (Other)
  Sender: FDA-Public Use
  Company Number: US-PFIZER INC-2015154058

PATIENT
  Age: 43 Year
  Sex: Female

DRUGS (9)
  1. ABILIFY [Concomitant]
     Active Substance: ARIPIPRAZOLE
     Indication: ANXIETY
     Dosage: 10 MG, 1X/DAY (AT BED TIME)
     Dates: start: 20140301
  2. BENICAR HCT [Concomitant]
     Active Substance: HYDROCHLOROTHIAZIDE\OLMESARTAN MEDOXOMIL
     Indication: HYPERTENSION
     Dosage: 1 DF, 1X/DAY
     Dates: start: 20140610
  3. ABILIFY [Concomitant]
     Active Substance: ARIPIPRAZOLE
     Indication: STRESS
  4. TOPAMAX [Concomitant]
     Active Substance: TOPIRAMATE
     Indication: MIGRAINE PROPHYLAXIS
     Dosage: 200 MG, 1X/DAY (AT BED TIME)
     Dates: start: 20080115
  5. LYRICA [Suspect]
     Active Substance: PREGABALIN
     Indication: NEUROPATHY PERIPHERAL
  6. LYRICA [Suspect]
     Active Substance: PREGABALIN
     Indication: COMPLEX REGIONAL PAIN SYNDROME
     Dosage: 75 MG, 4X/DAY
     Dates: start: 20150304
  7. LYRICA [Suspect]
     Active Substance: PREGABALIN
     Indication: FIBROMYALGIA
     Dosage: UNK
  8. LANSOPRAZOLE DR [Concomitant]
     Indication: GASTROOESOPHAGEAL REFLUX DISEASE
     Dosage: 30 MG, 1X/DAY
     Dates: start: 20130110
  9. VYVANSE [Concomitant]
     Active Substance: LISDEXAMFETAMINE DIMESYLATE
     Dosage: 40 MG, UNK
     Dates: start: 20131209

REACTIONS (9)
  - Road traffic accident [Unknown]
  - Contusion [Unknown]
  - Multiple fractures [Recovered/Resolved]
  - Pain [Not Recovered/Not Resolved]
  - Intervertebral disc protrusion [Not Recovered/Not Resolved]
  - Product use issue [Unknown]
  - Peripheral swelling [Not Recovered/Not Resolved]
  - Dizziness [Recovered/Resolved]
  - Fracture displacement [Not Recovered/Not Resolved]

NARRATIVE: CASE EVENT DATE: 20091012
